FAERS Safety Report 20827685 (Version 3)
Quarter: 2022Q2

REPORT INFORMATION
  Report Type: Spontaneous
  Country: JP (occurrence: None)
  Receive Date: 20220513
  Receipt Date: 20220531
  Transmission Date: 20220721
  Serious: Yes (Death, Other)
  Sender: FDA-Public Use
  Company Number: 2022A180697

PATIENT
  Age: 72 Year
  Sex: Male

DRUGS (1)
  1. LYNPARZA [Suspect]
     Active Substance: OLAPARIB
     Indication: Hormone-refractory prostate cancer
     Dosage: DOSE UNKNOWN
     Route: 048
     Dates: start: 20210826

REACTIONS (3)
  - Cerebral haemorrhage [Fatal]
  - Malignant neoplasm progression [Recovering/Resolving]
  - Lymphoma [Unknown]
